FAERS Safety Report 5192021-9 (Version None)
Quarter: 2006Q4

REPORT INFORMATION
  Report Type: 
  Country: None (occurrence: None)
  Receive Date: 20061220
  Receipt Date: 20061206
  Transmission Date: 20070319
  Serious: Yes (Hospitalization)
  Sender: FDA-Public Use
  Company Number: 226886

PATIENT
  Age: 61 Year
  Sex: Female

DRUGS (4)
  1. AVASTIN [Suspect]
     Indication: COLORECTAL CANCER
     Dosage: 7.5MG/KG, Q3W, INTRAVENOUS
     Route: 042
     Dates: start: 20060524
  2. CAPECITABINE (CAPECITABINE) [Suspect]
     Indication: COLORECTAL CANCER
     Dosage: 1000 MG/M2, BID, ORAL
     Route: 048
     Dates: start: 20060524
  3. OXALIPLATIN [Suspect]
     Indication: COLORECTAL CANCER
     Dosage: 130 MG/M2, Q3W, INTRAVENOUS
     Route: 042
     Dates: start: 20060524
  4. FENTANYL CITRATE [Concomitant]

REACTIONS (3)
  - MALAISE [None]
  - POST PROCEDURAL HAEMORRHAGE [None]
  - PYREXIA [None]
